FAERS Safety Report 12804727 (Version 1)
Quarter: 2016Q4

REPORT INFORMATION
  Report Type: Spontaneous
  Country: US (occurrence: US)
  Receive Date: 20161003
  Receipt Date: 20161003
  Transmission Date: 20170207
  Serious: Yes (Other)
  Sender: FDA-Public Use
  Company Number: US-ALLERGAN-1670531US

PATIENT
  Age: 25 Year
  Sex: Male

DRUGS (1)
  1. MESALAZINE UNK [Suspect]
     Active Substance: MESALAMINE
     Indication: COLITIS ULCERATIVE
     Route: 048

REACTIONS (4)
  - Chronic fatigue syndrome [Unknown]
  - Pancreatitis [Unknown]
  - Colitis ulcerative [Unknown]
  - Condition aggravated [Unknown]
